FAERS Safety Report 5228185-8 (Version None)
Quarter: 2007Q1

REPORT INFORMATION
  Report Type: 
  Country: None (occurrence: None)
  Receive Date: 20070130
  Receipt Date: 20070117
  Transmission Date: 20070707
  Serious: Yes (Hospitalization)
  Sender: FDA-Public Use
  Company Number: 2006BI018122

PATIENT
  Age: 57 Year
  Sex: Male

DRUGS (24)
  1. AVONEX [Suspect]
     Indication: MULTIPLE SCLEROSIS
     Dosage: 30 UG; QW; IM
     Route: 030
     Dates: start: 19990101
  2. INTRATHECAL BACLOFEN [Concomitant]
  3. LEXAPRO [Concomitant]
  4. ATENOLOL [Concomitant]
  5. FLONASE [Concomitant]
  6. MACRODANTIN [Concomitant]
  7. HYZAAR [Concomitant]
  8. TESTOSTERONE [Concomitant]
  9. REQUIP [Concomitant]
  10. DIAZEPAM [Concomitant]
  11. POTASSIUM ACETATE [Concomitant]
  12. LASIX [Concomitant]
  13. ROCEPHIN [Concomitant]
  14. ZITHROMAX [Concomitant]
  15. MOTRIN [Concomitant]
  16. TYLENOL (CAPLET) [Concomitant]
  17. BISACODYL [Concomitant]
  18. ATROVENT [Concomitant]
  19. ALBUTEROL [Concomitant]
  20. DETROL [Concomitant]
  21. MIRALAX [Concomitant]
  22. HYDROCHLOROTHIAZIDE [Concomitant]
  23. COZAAR [Concomitant]
  24. MORPHINE [Concomitant]

REACTIONS (18)
  - ACUTE PRERENAL FAILURE [None]
  - ACUTE RESPIRATORY FAILURE [None]
  - DEVICE MALFUNCTION [None]
  - DYSPNOEA EXERTIONAL [None]
  - HYPOTONIA [None]
  - LETHARGY [None]
  - MULTI-ORGAN FAILURE [None]
  - MUSCLE SPASTICITY [None]
  - NEPHROPATHY TOXIC [None]
  - PEPTIC ULCER PERFORATION [None]
  - PLEURAL EFFUSION [None]
  - PNEUMONIA [None]
  - PNEUMOPERITONEUM [None]
  - RENAL DISORDER [None]
  - RENAL FAILURE ACUTE [None]
  - SEPTIC SHOCK [None]
  - SOMNOLENCE [None]
  - URINARY TRACT INFECTION [None]
